FAERS Safety Report 8737855 (Version 6)
Quarter: 2012Q4

REPORT INFORMATION
  Report Type: 
  Country: US (occurrence: US)
  Receive Date: 20120823
  Receipt Date: 20121207
  Transmission Date: 20130627
  Serious: Yes (Life-Threatening, Hospitalization)
  Sender: FDA-Public Use
  Company Number: US-009507513-1208USA004919

PATIENT
  Age: 3 Year
  Sex: Male
  Weight: 10.9 kg

DRUGS (26)
  1. VORINOSTAT [Suspect]
     Indication: MEDULLOBLASTOMA
     Dosage: 230 mg/m2/dose on days 1-4
     Route: 048
     Dates: start: 20120629, end: 20120702
  2. VORINOSTAT [Suspect]
     Dosage: 230 mg/m2/dose on days 1-4
     Route: 048
     Dates: start: 20120723, end: 20120725
  3. ISOTRETINOIN [Suspect]
     Indication: MEDULLOBLASTOMA
     Dosage: 80 mg/m2/dose, bid on days 1-4
     Route: 048
     Dates: start: 20120629, end: 20120703
  4. ISOTRETINOIN [Suspect]
     Dosage: 80 mg/m2/dose, bid on days 1-4
     Route: 048
     Dates: start: 20120723, end: 20120727
  5. VINCRISTINE SULFATE [Suspect]
     Indication: MEDULLOBLASTOMA
     Dosage: 0.05 mg/kg/day on days 4 11 and 18
     Route: 042
     Dates: start: 20120709
  6. VINCRISTINE SULFATE [Suspect]
     Dosage: 0.05 mg/kg/day on days 4 11 and 18
     Route: 042
     Dates: start: 20120723
  7. VINCRISTINE SULFATE [Suspect]
     Dosage: 0.05 mg/kg/day on days 4 11 and 18
     Route: 042
     Dates: start: 20120702
  8. VINCRISTINE SULFATE [Suspect]
     Dosage: 0.05 mg/kg/day on days 4 11 and 18
     Route: 042
     Dates: start: 20120727
  9. VINCRISTINE SULFATE [Suspect]
     Dosage: UNK
  10. CISPLATIN [Suspect]
     Indication: MEDULLOBLASTOMA
     Dosage: 3.5 mg/kg/day over 6 hours on day 4
     Route: 042
     Dates: start: 20120702, end: 20120702
  11. CISPLATIN [Suspect]
     Dosage: 3.5 mg/kg/day over 6 hours on day 4
     Route: 042
     Dates: start: 20120726, end: 20120726
  12. CISPLATIN [Suspect]
     Dosage: 3.5 mg/kg/day over 6 hours on day 4
     Route: 042
     Dates: start: 20120727
  13. CYCLOPHOSPHAMIDE [Suspect]
     Indication: MEDULLOBLASTOMA
     Dosage: 60 mg/kg/day over 1 hour on day 5 and 6
     Route: 042
     Dates: start: 20120703, end: 20120704
  14. CYCLOPHOSPHAMIDE [Suspect]
     Dosage: 60 mg/kg/day over 1 hour on day 5 and 6
     Route: 042
     Dates: start: 20120727, end: 20120728
  15. ETOPOSIDE [Suspect]
     Indication: MEDULLOBLASTOMA
     Dosage: 2.5 mg/kg/day on days 4,5 and 6
     Route: 042
     Dates: start: 20120702, end: 20120704
  16. ETOPOSIDE [Suspect]
     Dosage: 2.5 mg/kg/day on days 4,5 and 6
     Route: 042
     Dates: start: 20120726, end: 20120728
  17. ETOPOSIDE [Suspect]
     Dosage: 2.5 mg/kg/day on days 4,5 and 6
     Route: 042
     Dates: start: 20120729
  18. FUROSEMIDE [Suspect]
     Dosage: 5 mg, qd
     Route: 042
     Dates: start: 20120728, end: 20120729
  19. CARBOPLATIN [Suspect]
     Indication: MEDULLOBLASTOMA
     Dosage: 17 mg/kg, qd
     Route: 042
     Dates: start: 20120910, end: 20120911
  20. CARBOPLATIN [Suspect]
     Dosage: 17 mg/kg, qd
     Route: 042
     Dates: start: 20121012, end: 20121013
  21. THIOTEPA [Suspect]
     Indication: MEDULLOBLASTOMA
     Dosage: 10 mg/kg, qd
     Route: 042
     Dates: start: 20120910, end: 20120911
  22. THIOTEPA [Suspect]
     Dosage: 10 mg/kg, qd
     Route: 042
     Dates: start: 20121012, end: 20121013
  23. PEGFILGRASTIM [Concomitant]
     Indication: MEDULLOBLASTOMA
  24. LORAZEPAM [Concomitant]
  25. ONDANSETRON [Concomitant]
  26. FLUCONAZOLE [Concomitant]

REACTIONS (11)
  - Bacteraemia [Recovered/Resolved]
  - Neutrophil count decreased [Recovering/Resolving]
  - Hypokalaemia [Recovering/Resolving]
  - Platelet count decreased [Recovering/Resolving]
  - White blood cell count decreased [Recovering/Resolving]
  - Febrile neutropenia [Recovering/Resolving]
  - Platelet count decreased [Recovered/Resolved]
  - Neutrophil count decreased [Recovered/Resolved]
  - White blood cell count decreased [Recovered/Resolved]
  - Anaemia [Recovered/Resolved]
  - Febrile neutropenia [Recovered/Resolved with Sequelae]
